FAERS Safety Report 23620433 (Version 8)
Quarter: 2025Q1

REPORT INFORMATION
  Report Type: Report from Study
  Country: US (occurrence: US)
  Receive Date: 20240312
  Receipt Date: 20250310
  Transmission Date: 20250409
  Serious: Yes (Other)
  Sender: TAKEDA
  Company Number: US-PAREXEL-2021US002900

PATIENT
  Age: 67 Year
  Sex: Male
  Weight: 96 kg

DRUGS (49)
  1. GLASSIA [Suspect]
     Active Substance: .ALPHA.1-PROTEINASE INHIBITOR HUMAN
     Indication: Alpha-1 antitrypsin deficiency
     Dosage: UNK UNK, 1/WEEK
     Dates: start: 20141112
  2. GLASSIA [Suspect]
     Active Substance: .ALPHA.1-PROTEINASE INHIBITOR HUMAN
     Dosage: 5700 MILLIGRAM, 1/WEEK
     Dates: start: 20150112
  3. GLASSIA [Suspect]
     Active Substance: .ALPHA.1-PROTEINASE INHIBITOR HUMAN
     Dosage: 60 MILLIGRAM/KILOGRAM, 1/WEEK
  4. COVID-19 VACCINE NOS [Suspect]
     Active Substance: COVID-19 VACCINE
     Indication: COVID-19 immunisation
  5. CELEBREX [Suspect]
     Active Substance: CELECOXIB
     Indication: Product used for unknown indication
  6. DIPHENHYDRAMINE [Concomitant]
     Active Substance: DIPHENHYDRAMINE
  7. LIDOCAINE [Concomitant]
     Active Substance: LIDOCAINE
  8. EPINEPHRINE [Concomitant]
     Active Substance: EPINEPHRINE
  9. IBUPROFEN [Concomitant]
     Active Substance: IBUPROFEN
  10. NAPROSYN [Concomitant]
     Active Substance: NAPROXEN
  11. LEVALBUTEROL [Concomitant]
     Active Substance: LEVALBUTEROL
  12. DUPIXENT [Concomitant]
     Active Substance: DUPILUMAB
  13. VENLAFAXINE [Concomitant]
     Active Substance: VENLAFAXINE HYDROCHLORIDE
  14. BREO ELLIPTA [Concomitant]
     Active Substance: FLUTICASONE FUROATE\VILANTEROL TRIFENATATE
  15. FLUTICASONE [Concomitant]
     Active Substance: FLUTICASONE
  16. XANAX [Concomitant]
     Active Substance: ALPRAZOLAM
  17. EFFEXOR [Concomitant]
     Active Substance: VENLAFAXINE HYDROCHLORIDE
  18. SIMVASTATIN [Concomitant]
     Active Substance: SIMVASTATIN
  19. VENTOLIN [Concomitant]
     Active Substance: ALBUTEROL SULFATE
  20. ASPIRIN [Concomitant]
     Active Substance: ASPIRIN
  21. AMLODIPINE [Concomitant]
     Active Substance: AMLODIPINE BESYLATE
  22. SPIRIVA [Concomitant]
     Active Substance: TIOTROPIUM BROMIDE MONOHYDRATE
  23. METFORMIN [Concomitant]
     Active Substance: METFORMIN HYDROCHLORIDE
  24. SALINE [Concomitant]
     Active Substance: SODIUM CHLORIDE
  25. ALBUTEROL [Concomitant]
     Active Substance: ALBUTEROL
  26. DICLOFENAC [Concomitant]
     Active Substance: DICLOFENAC
  27. SODIUM CHLORIDE [Concomitant]
     Active Substance: SODIUM CHLORIDE
  28. Lmx [Concomitant]
  29. Prednisone perrigo [Concomitant]
  30. BIOFREEZE [Concomitant]
     Active Substance: MENTHOL
  31. OXYGEN [Concomitant]
     Active Substance: OXYGEN
  32. VOLTAREN [Concomitant]
     Active Substance: DICLOFENAC SODIUM
  33. FLUBLOK QUADRIVALENT NOS [Concomitant]
     Active Substance: INFLUENZA VIRUS VACCINE
  34. PFIZER-BIONTECH COVID-19 VACCINE [Concomitant]
     Active Substance: TOZINAMERAN
  35. AMLODIPINE BESYLATE [Concomitant]
     Active Substance: AMLODIPINE BESYLATE
  36. DICLOFENAC SODIUM [Concomitant]
     Active Substance: DICLOFENAC SODIUM
  37. TAMSULOSIN HYDROCHLORIDE [Concomitant]
     Active Substance: TAMSULOSIN HYDROCHLORIDE
  38. VENLAFAXINE HCL [Concomitant]
     Active Substance: VENLAFAXINE HYDROCHLORIDE
  39. ALEVE [Concomitant]
     Active Substance: NAPROXEN SODIUM
  40. DIPHENHYDRAMINE HYDROCHLORIDE [Concomitant]
     Active Substance: DIPHENHYDRAMINE HYDROCHLORIDE
  41. CETIRIZINE HCL [Concomitant]
     Active Substance: CETIRIZINE HYDROCHLORIDE
  42. VOLTAREN ARTHRITIS PAIN [Concomitant]
     Active Substance: DICLOFENAC SODIUM
  43. ALFUZOSIN HYDROCHLORIDE [Concomitant]
     Active Substance: ALFUZOSIN HYDROCHLORIDE
  44. MECLIZINE HYDROCHLORIDE [Concomitant]
     Active Substance: MECLIZINE HYDROCHLORIDE
  45. AMLODIPINE BESYLATE [Concomitant]
     Active Substance: AMLODIPINE BESYLATE
  46. ALBUTEROL SULFATE [Concomitant]
     Active Substance: ALBUTEROL SULFATE
  47. PREDNISONE [Concomitant]
     Active Substance: PREDNISONE
  48. ALBUTEROL\IPRATROPIUM [Concomitant]
     Active Substance: ALBUTEROL\IPRATROPIUM
  49. AZITHROMYCIN [Concomitant]
     Active Substance: AZITHROMYCIN

REACTIONS (25)
  - Respiratory distress [Recovering/Resolving]
  - Nephrolithiasis [Unknown]
  - Immunisation reaction [Recovering/Resolving]
  - Spondylitis [Unknown]
  - Productive cough [Unknown]
  - Flank pain [Recovered/Resolved]
  - Blood urine present [Unknown]
  - Pyrexia [Recovering/Resolving]
  - Neck pain [Unknown]
  - Arthralgia [Unknown]
  - Vertigo [Recovering/Resolving]
  - Urinary tract disorder [Unknown]
  - Benign prostatic hyperplasia [Unknown]
  - Discomfort [Unknown]
  - Urine abnormality [Recovered/Resolved]
  - Post procedural complication [Unknown]
  - Oxygen saturation decreased [Recovering/Resolving]
  - Urinary tract infection [Unknown]
  - Sinusitis [Recovering/Resolving]
  - Chronic obstructive pulmonary disease [Recovering/Resolving]
  - Chest discomfort [Unknown]
  - Back pain [Unknown]
  - Cough [Recovering/Resolving]
  - Dyspnoea [Recovering/Resolving]
  - Headache [Recovering/Resolving]

NARRATIVE: CASE EVENT DATE: 20240110
